FAERS Safety Report 7410835-9 (Version None)
Quarter: 2011Q2

REPORT INFORMATION
  Report Type: 
  Country: None (occurrence: None)
  Receive Date: 20110413
  Receipt Date: 20110408
  Transmission Date: 20111010
  Serious: No
  Sender: FDA-Public Use
  Company Number: US-PFIZER INC-2011078356

PATIENT
  Sex: Female
  Weight: 69.841 kg

DRUGS (3)
  1. ADVIL CONGESTION RELIEF [Suspect]
     Indication: HEADACHE
     Dosage: 200/10 MG, 2X/DAY
     Route: 048
     Dates: start: 20110407
  2. ADVIL CONGESTION RELIEF [Suspect]
     Indication: RESPIRATORY TRACT CONGESTION
  3. ADVIL CONGESTION RELIEF [Suspect]
     Indication: NASAL CONGESTION

REACTIONS (1)
  - DRUG INEFFECTIVE [None]
